FAERS Safety Report 11052337 (Version 3)
Quarter: 2015Q2

REPORT INFORMATION
  Report Type: Spontaneous
  Country: IT (occurrence: IT)
  Receive Date: 20150421
  Receipt Date: 20150520
  Transmission Date: 20150821
  Serious: Yes (Death, Other)
  Sender: FDA-Public Use
  Company Number: IT-009507513-1504ITA004651

PATIENT
  Age: 66 Year
  Sex: Female

DRUGS (1)
  1. TIENAM 500 MG+500 MG POLVERE PER SOLUZIONE PER INFUSIONE [Suspect]
     Active Substance: CILASTATIN SODIUM\IMIPENEM

REACTIONS (2)
  - Sepsis [Fatal]
  - Drug ineffective [Fatal]
